FAERS Safety Report 7769893-4 (Version None)
Quarter: 2011Q3

REPORT INFORMATION
  Report Type: 
  Country: None (occurrence: None)
  Receive Date: 20110922
  Receipt Date: 20110916
  Transmission Date: 20111222
  Serious: Yes (Death, Hospitalization)
  Sender: FDA-Public Use
  Company Number: US-GLAXOSMITHKLINE-A0719008A

PATIENT
  Age: 48 Year
  Sex: Male
  Weight: 106.8 kg

DRUGS (5)
  1. AVANDIA [Suspect]
     Indication: DIABETES MELLITUS
     Dosage: 4MG PER DAY
     Route: 048
     Dates: end: 20050301
  2. INSULIN [Concomitant]
  3. LIPITOR [Concomitant]
  4. GLUCOVANCE [Concomitant]
  5. ACCUPRIL [Concomitant]

REACTIONS (4)
  - CARDIAC ARREST [None]
  - MYOCARDIAL INFARCTION [None]
  - BLOOD CHOLESTEROL INCREASED [None]
  - CARDIOGENIC SHOCK [None]
